FAERS Safety Report 14651349 (Version 1)
Quarter: 2018Q1

REPORT INFORMATION
  Report Type: Spontaneous
  Country: US (occurrence: US)
  Receive Date: 20180316
  Receipt Date: 20180316
  Transmission Date: 20180509
  Serious: No
  Sender: FDA-Public Use
  Company Number: None

PATIENT
  Age: 67 Year
  Sex: Female
  Weight: 74.7 kg

DRUGS (7)
  1. LITHIUM CARBONATE. [Suspect]
     Active Substance: LITHIUM CARBONATE
     Indication: BIPOLAR DISORDER
     Dosage: ?          QUANTITY:1 CAPSULE(S);?
     Route: 048
     Dates: start: 20171122, end: 20180301
  2. OLANZAPINE. [Concomitant]
     Active Substance: OLANZAPINE
  3. CLONAZEPAM. [Concomitant]
     Active Substance: CLONAZEPAM
  4. VITAMINE D [Concomitant]
  5. FISH OIL [Concomitant]
     Active Substance: FISH OIL
  6. LUTEINE [Concomitant]
  7. VITAMIN B12 [Concomitant]
     Active Substance: CYANOCOBALAMIN

REACTIONS (1)
  - Alopecia [None]

NARRATIVE: CASE EVENT DATE: 20180101
